FAERS Safety Report 15756350 (Version 1)
Quarter: 2018Q4

REPORT INFORMATION
  Report Type: Spontaneous
  Country: US (occurrence: US)
  Receive Date: 20181222
  Receipt Date: 20181222
  Transmission Date: 20190205
  Serious: Yes (Other)
  Sender: FDA-Public Use
  Company Number: None

PATIENT
  Age: 64 Year
  Weight: 67.5 kg

DRUGS (7)
  1. AIMOVIG [Suspect]
     Active Substance: ERENUMAB-AOOE
     Indication: MIGRAINE
     Dates: end: 20181222
  2. AMBIEN [Concomitant]
     Active Substance: ZOLPIDEM TARTRATE
  3. CLONIDINE. [Concomitant]
     Active Substance: CLONIDINE
  4. BENADRYL [Concomitant]
     Active Substance: DIPHENHYDRAMINE HYDROCHLORIDE
  5. BABY ASPIRIN [Concomitant]
     Active Substance: ASPIRIN
  6. LAMOTRINE [Concomitant]
     Active Substance: LAMOTRIGINE
  7. TYLENOL [Concomitant]
     Active Substance: ACETAMINOPHEN

REACTIONS (8)
  - Pain [None]
  - Drug ineffective [None]
  - Pain in extremity [None]
  - Constipation [None]
  - Influenza like illness [None]
  - Feeling abnormal [None]
  - Bone pain [None]
  - Angina pectoris [None]

NARRATIVE: CASE EVENT DATE: 20181221
